FAERS Safety Report 18633458 (Version 1)
Quarter: 2020Q4

REPORT INFORMATION
  Report Type: Spontaneous
  Country: FR (occurrence: FR)
  Receive Date: 20201218
  Receipt Date: 20201218
  Transmission Date: 20210114
  Serious: Yes (Hospitalization, Other)
  Sender: FDA-Public Use
  Company Number: NVSC2020FR330962

PATIENT
  Age: 69 Year
  Sex: Female
  Weight: 69 kg

DRUGS (6)
  1. VANCOMYCIN [Suspect]
     Active Substance: VANCOMYCIN
     Indication: OSTEOMYELITIS
     Dosage: 1.25 G, Q12H (1.25 GRAM, Q12H)
     Route: 042
     Dates: start: 20200828, end: 20200831
  2. ALDACTONE [Concomitant]
     Active Substance: SPIRONOLACTONE
     Indication: HYPERTENSION
     Dosage: 75 MG, QD (75 MILLIGRAM, QD)
     Route: 048
     Dates: start: 20200909, end: 20200909
  3. EUPANTOL [Concomitant]
     Active Substance: PANTOPRAZOLE SODIUM
     Indication: GASTROOESOPHAGEAL REFLUX DISEASE
     Dosage: 40 MG, QD (40 MILLIGRAM, QD)
     Route: 048
  4. LAMALINE [Concomitant]
     Indication: PAIN
     Dosage: UNK (POSOLOGIE INCONNUE)
     Route: 054
     Dates: start: 20200828
  5. CEFEPIME [Suspect]
     Active Substance: CEFEPIME HYDROCHLORIDE
     Indication: OSTEOMYELITIS
     Dosage: 6 G, QD (2 GRAM, Q8H)
     Route: 065
     Dates: start: 20200828, end: 20200910
  6. RENITEC [Concomitant]
     Indication: HYPERTENSION
     Dosage: 20 MG, QD (20 MILLIGRAM, QD)
     Route: 048
     Dates: start: 20200909, end: 20200909

REACTIONS (3)
  - Intentional product use issue [Unknown]
  - Acute kidney injury [Recovered/Resolved]
  - Encephalopathy [Recovered/Resolved]

NARRATIVE: CASE EVENT DATE: 20200907
